FAERS Safety Report 5092580-0 (Version None)
Quarter: 2006Q3

REPORT INFORMATION
  Report Type: 
  Country: None (occurrence: None)
  Receive Date: 20060727
  Receipt Date: 20060610
  Transmission Date: 20061208
  Serious: Yes (Other)
  Sender: FDA-Public Use
  Company Number: 2006075293

PATIENT
  Age: 51 Year
  Sex: Female
  Weight: 99.7913 kg

DRUGS (4)
  1. LYRICA [Suspect]
     Indication: PAIN
     Dosage: 150 MG (75 MG,2 IN 1 D),ORAL
     Route: 048
     Dates: start: 20060101
  2. METHADONE HCL [Concomitant]
  3. EFFEXOR XR [Concomitant]
  4. SOMA [Concomitant]

REACTIONS (4)
  - HEADACHE [None]
  - HYPOAESTHESIA [None]
  - INSOMNIA [None]
  - NAUSEA [None]
